FAERS Safety Report 16970775 (Version 1)
Quarter: 2019Q4

REPORT INFORMATION
  Report Type: Spontaneous
  Country: FR (occurrence: FR)
  Receive Date: 20191029
  Receipt Date: 20191029
  Transmission Date: 20200122
  Serious: Yes (Hospitalization)
  Sender: FDA-Public Use
  Company Number: FR-009507513-1910FRA014386

PATIENT
  Age: 54 Year
  Sex: Male

DRUGS (16)
  1. LARGACTIL [Suspect]
     Active Substance: CHLORPROMAZINE
     Indication: AGITATION
     Dosage: UNK
     Route: 048
     Dates: start: 20190904
  2. KEPPRA [Suspect]
     Active Substance: LEVETIRACETAM
     Indication: EPILEPSY
     Dosage: 1000 LITRE, QD
     Route: 042
     Dates: start: 20190912, end: 20191004
  3. VALIUM [Concomitant]
     Active Substance: DIAZEPAM
     Dosage: 10 MILLIGRAM, QD (IF NEEDED)
     Route: 048
  4. KEYTRUDA [Suspect]
     Active Substance: PEMBROLIZUMAB
     Indication: ADENOCARCINOMA
     Dosage: 1 DOSAGE FORM, Q3W, POWDER FOR CONCENTRATE FOR SOLUTION FOR INFUSION
     Route: 042
     Dates: start: 20190913
  5. CIFLOX (CIPROFLOXACIN HYDROCHLORIDE) [Suspect]
     Active Substance: CIPROFLOXACIN HYDROCHLORIDE
     Indication: C-REACTIVE PROTEIN INCREASED
     Dosage: UNK
     Route: 042
     Dates: start: 20190906
  6. SABRIL [Concomitant]
     Active Substance: VIGABATRIN
     Indication: EPILEPSY
     Dosage: 1000 MILLIGRAM, QD
     Route: 048
     Dates: end: 20190915
  7. ATORVASTATIN [Concomitant]
     Active Substance: ATORVASTATIN
     Dosage: 40 MILLIGRAM, QD
  8. SKENAN [Concomitant]
     Active Substance: MORPHINE SULFATE
     Indication: PAIN
     Dosage: 2 DOSAGE FORM, QD, MICROGRANULES WITH EXTENDED RELEASE IN CAPSULE
     Route: 048
     Dates: end: 20190917
  9. PIPERACILLIN SODIUM [Suspect]
     Active Substance: PIPERACILLIN SODIUM
     Indication: PYREXIA
     Dosage: UNK
     Route: 048
     Dates: start: 20190904, end: 20191004
  10. NATISPRAY [Concomitant]
     Active Substance: NITROGLYCERIN
     Indication: INFARCTION
     Dosage: 1 DOSAGE FORM, PRN, ORAL SPRAY SOLUTION
  11. TEGRETOL [Concomitant]
     Active Substance: CARBAMAZEPINE
     Indication: EPILEPSY
     Dosage: 800 MILLIGRAM, QD
     Route: 048
     Dates: end: 20190915
  12. TAZOBACTAM [Suspect]
     Active Substance: TAZOBACTAM
     Indication: PYREXIA
     Route: 048
     Dates: start: 20190904, end: 20191004
  13. INNOHEP [Suspect]
     Active Substance: TINZAPARIN SODIUM
     Indication: ANTIPHOSPHOLIPID SYNDROME
     Dosage: UNK
     Route: 058
     Dates: start: 20190910
  14. BISOPROLOL FUMARATE. [Concomitant]
     Active Substance: BISOPROLOL FUMARATE
     Dosage: 10 MILLIGRAM, QD
     Route: 048
  15. ACTISKENAN [Concomitant]
     Active Substance: MORPHINE SULFATE
     Dosage: 5 GIGABECQUEREL, PRN
  16. LAMICTAL [Concomitant]
     Active Substance: LAMOTRIGINE
     Indication: EPILEPSY
     Dosage: 200 MILLIGRAM, QD
     Route: 048
     Dates: end: 20190915

REACTIONS (1)
  - Agranulocytosis [Not Recovered/Not Resolved]

NARRATIVE: CASE EVENT DATE: 20190926
